FAERS Safety Report 16244033 (Version 2)
Quarter: 2019Q2

REPORT INFORMATION
  Report Type: Spontaneous
  Country: AU (occurrence: AU)
  Receive Date: 20190426
  Receipt Date: 20190507
  Transmission Date: 20190711
  Serious: Yes (Death)
  Sender: FDA-Public Use
  Company Number: AU-ACTELION-A-CH2019-189412

PATIENT
  Age: 2 Year
  Sex: Male
  Weight: 13 kg

DRUGS (15)
  1. CLONIDINE. [Concomitant]
     Active Substance: CLONIDINE
     Indication: INSOMNIA
     Dosage: 50 MCG, OD
     Route: 048
  2. MELATONIN [Concomitant]
     Active Substance: MELATONIN
     Indication: INSOMNIA
     Dosage: 3 MG, OD
     Route: 048
  3. OMEPRAZOLE. [Concomitant]
     Active Substance: OMEPRAZOLE
     Dosage: 10 MG, OD
     Route: 048
  4. GLYCOPYRROLATE. [Concomitant]
     Active Substance: GLYCOPYRROLATE
     Dosage: 400 MCG, BID
     Route: 048
     Dates: end: 20190415
  5. PYRIDOXINE [Concomitant]
     Active Substance: PYRIDOXINE
     Indication: SEIZURE
     Dosage: 50 MG, OD
     Route: 048
  6. CHLORAL HYDRATE [Concomitant]
     Active Substance: CHLORAL HYDRATE
     Indication: INSOMNIA
     Dosage: 200/ 300MG
     Route: 048
  7. AZITHROMYCIN ANHYDROUS. [Concomitant]
     Active Substance: AZITHROMYCIN ANHYDROUS
     Indication: PROPHYLAXIS
     Dosage: 136 MG, OD
     Route: 048
  8. LEVETIRACETAM. [Concomitant]
     Active Substance: LEVETIRACETAM
     Indication: SEIZURE
     Dosage: 200 MG, BID
     Route: 048
  9. VIGABATRIN. [Concomitant]
     Active Substance: VIGABATRIN
     Indication: SEIZURE
     Dosage: 500 MG, BID
     Route: 048
     Dates: end: 20190415
  10. TOPIRAMATE. [Concomitant]
     Active Substance: TOPIRAMATE
     Indication: SEIZURE
     Dosage: 30 MG, BID
     Route: 048
     Dates: end: 20190415
  11. GABAPENTIN. [Concomitant]
     Active Substance: GABAPENTIN
     Indication: NEURALGIA
     Dosage: 160 MG, TID
     Route: 048
  12. TRACLEER [Suspect]
     Active Substance: BOSENTAN
     Indication: PULMONARY ARTERIAL HYPERTENSION
     Dosage: 31.25 MG, OD
     Route: 048
     Dates: start: 20190328, end: 20190415
  13. SILDENAFIL. [Suspect]
     Active Substance: SILDENAFIL
     Indication: PULMONARY ARTERIAL HYPERTENSION
     Dosage: 12.5 MG, TID
     Route: 048
     Dates: start: 20170424, end: 20190415
  14. DIAZEPAM. [Concomitant]
     Active Substance: DIAZEPAM
     Indication: DYSTONIA
     Dosage: 0.8 MG, QID
     Route: 048
  15. NITRAZEPAM [Concomitant]
     Active Substance: NITRAZEPAM
     Indication: INSOMNIA
     Dosage: 5 MG, OD
     Route: 048

REACTIONS (6)
  - Right ventricular failure [Fatal]
  - Epilepsy [Fatal]
  - Pulmonary hypertension [Fatal]
  - Cough [Fatal]
  - Viral upper respiratory tract infection [Fatal]
  - Aspiration [Fatal]

NARRATIVE: CASE EVENT DATE: 20190415
